FAERS Safety Report 25209096 (Version 1)
Quarter: 2025Q2

REPORT INFORMATION
  Report Type: Spontaneous
  Country: US (occurrence: None)
  Receive Date: 20250417
  Receipt Date: 20250417
  Transmission Date: 20250716
  Serious: No
  Sender: FDA-CTU
  Company Number: None

PATIENT
  Age: 80 Year
  Sex: Female

DRUGS (1)
  1. REPATHA [Suspect]
     Active Substance: EVOLOCUMAB

REACTIONS (8)
  - Rhinorrhoea [None]
  - Nasal congestion [None]
  - Cough [None]
  - Dyspnoea [None]
  - Musculoskeletal stiffness [None]
  - Musculoskeletal stiffness [None]
  - Alopecia [None]
  - Alopecia [None]
